FAERS Safety Report 14078153 (Version 1)
Quarter: 2017Q4

REPORT INFORMATION
  Report Type: Spontaneous
  Country: US (occurrence: US)
  Receive Date: 20171011
  Receipt Date: 20171011
  Transmission Date: 20180321
  Serious: No
  Sender: FDA-Public Use
  Company Number: None

PATIENT
  Age: 40 Year
  Sex: Female
  Weight: 61 kg

DRUGS (1)
  1. DIPHENHYDRAMINE. [Suspect]
     Active Substance: DIPHENHYDRAMINE
     Indication: MYASTHENIA GRAVIS
     Dosage: ?          OTHER FREQUENCY:WEEKLY;?
     Route: 041
     Dates: start: 20170810, end: 20170810

REACTIONS (6)
  - Dyspnoea [None]
  - Tremor [None]
  - Infusion related reaction [None]
  - Throat tightness [None]
  - Blood pressure systolic increased [None]
  - Heart rate increased [None]

NARRATIVE: CASE EVENT DATE: 20170810
